FAERS Safety Report 6594673-5 (Version None)
Quarter: 2010Q1

REPORT INFORMATION
  Report Type: 
  Country: None (occurrence: None)
  Receive Date: 20100222
  Receipt Date: 20100122
  Transmission Date: 20100710
  Serious: No
  Sender: FDA-Public Use
  Company Number: US-BAYER-200942815NA

PATIENT
  Age: 62 Year
  Sex: Male

DRUGS (3)
  1. LEVITRA [Suspect]
     Indication: ERECTILE DYSFUNCTION
     Dosage: LAST BATCH
  2. LEVITRA [Suspect]
     Dosage: CURRENT BATCH
  3. LEVITRA [Suspect]
     Dates: start: 20080101

REACTIONS (2)
  - ERECTILE DYSFUNCTION [None]
  - FLUSHING [None]
